FAERS Safety Report 23283781 (Version 1)
Quarter: 2023Q4

REPORT INFORMATION
  Report Type: Spontaneous
  Country: US (occurrence: US)
  Receive Date: 20231211
  Receipt Date: 20231211
  Transmission Date: 20240110
  Serious: Yes (Other)
  Sender: FDA-Public Use
  Company Number: US-PFIZER INC-PV202300196536

PATIENT
  Age: 76 Year
  Sex: Female
  Weight: 86.9 kg

DRUGS (3)
  1. IBRANCE [Suspect]
     Active Substance: PALBOCICLIB
     Indication: Breast cancer female
     Dosage: 125 MG, 1X/DAY
     Route: 048
     Dates: start: 20221207
  2. IBRANCE [Suspect]
     Active Substance: PALBOCICLIB
     Indication: Breast cancer stage IV
     Dosage: 75 MG, CYCLIC FOR 21 DAYS, THEN OFF FOR 7 DAYS
     Route: 048
  3. ANASTROZOLE [Concomitant]
     Active Substance: ANASTROZOLE
     Indication: Breast cancer stage IV
     Dosage: 1 MG, 1X/DAY
     Dates: start: 20231031

REACTIONS (3)
  - Neutropenia [Unknown]
  - Skin mass [Not Recovered/Not Resolved]
  - Breast discomfort [Unknown]

NARRATIVE: CASE EVENT DATE: 20230701
